FAERS Safety Report 18963275 (Version 1)
Quarter: 2021Q1

REPORT INFORMATION
  Report Type: Spontaneous
  Country: US (occurrence: US)
  Receive Date: 20210303
  Receipt Date: 20210303
  Transmission Date: 20210420
  Serious: No
  Sender: FDA-Public Use
  Company Number: None

PATIENT
  Age: 41 Year
  Sex: Female

DRUGS (14)
  1. CYCLOPHOSPHAMIDE. [Suspect]
     Active Substance: CYCLOPHOSPHAMIDE
     Dosage: ?          OTHER FREQUENCY:ON DAY 8 AND 14;?
     Route: 042
  2. DOXYCYCLINE MONOHYDRATE [Concomitant]
     Active Substance: DOXYCYCLINE
  3. FAMOTIDINE 20 MG/2 ML VIAL [Concomitant]
  4. METHERGINE [Concomitant]
     Active Substance: METHYLERGONOVINE MALEATE
  5. MULTIVITAMIN, PRENATAL [Concomitant]
  6. IBUPROFEN. [Concomitant]
     Active Substance: IBUPROFEN
  7. METHOTREXATE SDV 1 GM/40 ML VI [Concomitant]
  8. DIPHENHYDRAMINE 50 MG/ML VIAL [Concomitant]
  9. DACTINOMYCIN 0.5 MG VIAL [Concomitant]
  10. PALONOSETRON 0.25 MG ? TWO ML [Concomitant]
  11. VINCRISTINE [Suspect]
     Active Substance: VINCRISTINE
     Dosage: ?          OTHER FREQUENCY:ON DAY 8 AND 14;?
     Route: 042
  12. DEXAMETHASONE 10 MG/ML VIAL [Concomitant]
  13. FOSAPREPITANT 150 MG VIAL [Concomitant]
  14. ORTHO TRI CYCLEN LO [Concomitant]
     Active Substance: ETHINYL ESTRADIOL\NORGESTIMATE

REACTIONS (1)
  - Disease progression [None]

NARRATIVE: CASE EVENT DATE: 20210303
